FAERS Safety Report 7284333-X (Version None)
Quarter: 2011Q1

REPORT INFORMATION
  Report Type: 
  Country: None (occurrence: None)
  Receive Date: 20110209
  Receipt Date: 20110203
  Transmission Date: 20110831
  Serious: Yes (Other)
  Sender: FDA-Public Use
  Company Number: ES-PFIZER INC-2011025770

PATIENT
  Age: 63 Year
  Sex: Female

DRUGS (1)
  1. CARDYL [Suspect]
     Indication: HYPERCHOLESTEROLAEMIA
     Dosage: 10 MG, 1X/DAY
     Route: 048
     Dates: start: 20020215, end: 20100922

REACTIONS (2)
  - FEELING COLD [None]
  - PARAESTHESIA [None]
